FAERS Safety Report 6125356-3 (Version None)
Quarter: 2009Q1

REPORT INFORMATION
  Report Type: 
  Country: None (occurrence: None)
  Receive Date: 20090319
  Receipt Date: 20090319
  Transmission Date: 20090719
  Serious: No
  Sender: FDA-Public Use
  Company Number: None

PATIENT
  Age: 65 Year
  Sex: Female
  Weight: 70.3075 kg

DRUGS (1)
  1. METHIMAZOLE [Suspect]
     Indication: GOITRE
     Dosage: 2 PILLS 2X/DAY PO
     Route: 048
     Dates: start: 20090209, end: 20090304

REACTIONS (9)
  - ARTHRALGIA [None]
  - GAIT DISTURBANCE [None]
  - IMPAIRED SELF-CARE [None]
  - INSOMNIA [None]
  - MOVEMENT DISORDER [None]
  - MYALGIA [None]
  - OVERDOSE [None]
  - PRODUCT QUALITY ISSUE [None]
  - PRURITUS [None]
